FAERS Safety Report 6773616-5 (Version None)
Quarter: 2010Q2

REPORT INFORMATION
  Report Type: 
  Country: None (occurrence: None)
  Receive Date: 20100614
  Receipt Date: 20100601
  Transmission Date: 20101027
  Serious: Yes (Hospitalization)
  Sender: FDA-Public Use
  Company Number: 237200K09USA

PATIENT
  Age: 38 Year
  Sex: Female
  Weight: 118 kg

DRUGS (6)
  1. REBIF [Suspect]
     Indication: MULTIPLE SCLEROSIS
     Dosage: 44 MCG, 3 IN 1 WK, SUBCUTANEOUS
     Route: 058
     Dates: start: 20070817
  2. KEPPRA XR (LEVETIRACETAM) [Concomitant]
  3. NEURONTIN [Concomitant]
  4. SOMA [Concomitant]
  5. LORTAB (VICODIN) [Concomitant]
  6. DIAMOX [Concomitant]

REACTIONS (21)
  - CARDIAC FAILURE CONGESTIVE [None]
  - CONVULSION [None]
  - COUGH [None]
  - CRYING [None]
  - CSF PRESSURE INCREASED [None]
  - DEVICE MALFUNCTION [None]
  - EPILEPSY [None]
  - HEADACHE [None]
  - HYPOVENTILATION [None]
  - INJECTION SITE HAEMATOMA [None]
  - INJECTION SITE PAIN [None]
  - LIBIDO DECREASED [None]
  - MULTIPLE SCLEROSIS RELAPSE [None]
  - MUSCULAR WEAKNESS [None]
  - NO THERAPEUTIC RESPONSE [None]
  - OEDEMA PERIPHERAL [None]
  - PAIN IN EXTREMITY [None]
  - PANIC ATTACK [None]
  - SKIN LACERATION [None]
  - STRESS [None]
  - VISION BLURRED [None]
